FAERS Safety Report 8226799-4 (Version None)
Quarter: 2012Q1

REPORT INFORMATION
  Report Type: 
  Country: None (occurrence: None)
  Receive Date: 20120322
  Receipt Date: 20120314
  Transmission Date: 20120608
  Serious: Yes (Other)
  Sender: FDA-Public Use
  Company Number: US-BAYER-2011-090850

PATIENT
  Age: 18 Year
  Sex: Female
  Weight: 50 kg

DRUGS (6)
  1. YAZ [Suspect]
     Indication: ACNE
     Dosage: UNK
     Dates: start: 20090701
  2. TORADOL [Concomitant]
     Dosage: UNK
     Dates: start: 20090801
  3. YAZ [Suspect]
     Indication: CONTRACEPTION
  4. LOESTRIN FE 1/20 [Concomitant]
  5. DOXYCYCLINE HYCLATE [Concomitant]
     Indication: ACNE
     Dosage: UNK
     Dates: start: 20010901
  6. IBUPROFEN TABLETS [Concomitant]
     Dosage: UNK

REACTIONS (4)
  - INJURY [None]
  - DEEP VEIN THROMBOSIS [None]
  - ANXIETY [None]
  - PAIN [None]
